FAERS Safety Report 24971779 (Version 1)
Quarter: 2025Q1

REPORT INFORMATION
  Report Type: Spontaneous
  Country: AU (occurrence: AU)
  Receive Date: 20250214
  Receipt Date: 20250214
  Transmission Date: 20250409
  Serious: Yes (Hospitalization)
  Sender: LANTHEUS MEDICAL IMAGING
  Company Number: AU-LANTHEUS-LMI-2025-00111

PATIENT
  Age: 73 Year
  Sex: Male
  Weight: 144 kg

DRUGS (1)
  1. CARDIOLITE [Suspect]
     Active Substance: TECHNETIUM TC-99M SESTAMIBI
     Indication: Scan myocardial perfusion
     Route: 042
     Dates: start: 20241218, end: 20241218

REACTIONS (4)
  - Paraesthesia [Recovered/Resolved]
  - Erythema [Recovered/Resolved]
  - Hyperhidrosis [Recovered/Resolved]
  - Dyspnoea [Recovered/Resolved]

NARRATIVE: CASE EVENT DATE: 20241218
